FAERS Safety Report 6127045-8 (Version None)
Quarter: 2009Q1

REPORT INFORMATION
  Report Type: 
  Country: None (occurrence: None)
  Receive Date: 20090320
  Receipt Date: 20090319
  Transmission Date: 20090719
  Serious: Yes (Death)
  Sender: FDA-Public Use
  Company Number: US-ROXANE LABORATORIES, INC.-2009-RO-00264RO

PATIENT
  Age: 44 Year
  Sex: Male

DRUGS (3)
  1. METHADONE HCL [Suspect]
     Indication: PAIN
  2. XANAX [Concomitant]
  3. VALIUM [Concomitant]

REACTIONS (1)
  - THERAPEUTIC AGENT TOXICITY [None]
